FAERS Safety Report 9432662 (Version 2)
Quarter: 2014Q2

REPORT INFORMATION
  Report Type: Spontaneous
  Country: US (occurrence: US)
  Receive Date: 20130731
  Receipt Date: 20140522
  Transmission Date: 20141212
  Serious: No
  Sender: FDA-Public Use
  Company Number: US-COVIDIEN/TYCO HEALTHCARE/MALLINCKRODT-T201303836

PATIENT
  Sex: Female
  Weight: 56.69 kg

DRUGS (3)
  1. FENTANYL TRANSDERMAL SYSTEM [Suspect]
     Indication: PAIN
     Dosage: 100 MCG/HR, Q 48 HOURS
     Route: 062
     Dates: start: 20130715
  2. FENTANYL TRANSDERMAL SYSTEM [Suspect]
     Dosage: 75 MCG/HR, Q72 HOURS
     Route: 062
     Dates: start: 20130604, end: 20130715
  3. OXYCODONE [Concomitant]
     Indication: BREAKTHROUGH PAIN
     Dosage: 30 MG, EVERY FOUR HOURS PRN
     Route: 048

REACTIONS (8)
  - Confusional state [Not Recovered/Not Resolved]
  - Somnolence [Not Recovered/Not Resolved]
  - Anxiety [Not Recovered/Not Resolved]
  - Weight decreased [Not Recovered/Not Resolved]
  - Sleep disorder [Not Recovered/Not Resolved]
  - Application site rash [Recovered/Resolved]
  - Drug effect decreased [Unknown]
  - Drug effect delayed [Not Recovered/Not Resolved]
